FAERS Safety Report 24000557 (Version 1)
Quarter: 2024Q2

REPORT INFORMATION
  Report Type: Spontaneous
  Country: US (occurrence: None)
  Receive Date: 20240621
  Receipt Date: 20240621
  Transmission Date: 20240716
  Serious: No
  Sender: FDA-Public Use
  Company Number: None

PATIENT
  Age: 55 Year
  Sex: Female
  Weight: 62.1 kg

DRUGS (1)
  1. HERBALS\MUSHROOMS UNSPECIFIED [Suspect]
     Active Substance: HERBALS\MUSHROOMS UNSPECIFIED
     Dates: start: 20240618, end: 20240618

REACTIONS (12)
  - Vomiting [None]
  - Diarrhoea [None]
  - Nervous system disorder [None]
  - Muscle spasms [None]
  - Confusional state [None]
  - Hypopnoea [None]
  - Loss of consciousness [None]
  - Tremor [None]
  - Anxiety [None]
  - Dizziness [None]
  - Hypoglycaemia [None]
  - Nausea [None]

NARRATIVE: CASE EVENT DATE: 20240618
